FAERS Safety Report 6523882-6 (Version None)
Quarter: 2009Q4

REPORT INFORMATION
  Report Type: 
  Country: None (occurrence: None)
  Receive Date: 20091231
  Receipt Date: 20091228
  Transmission Date: 20100525
  Serious: Yes (Life-Threatening)
  Sender: FDA-Public Use
  Company Number: FR-ASTRAZENECA-2009SE33636

PATIENT
  Age: 27773 Day
  Sex: Female
  Weight: 120 kg

DRUGS (8)
  1. CRESTOR [Suspect]
     Route: 048
     Dates: end: 20090909
  2. COVERSYL [Suspect]
     Route: 048
     Dates: end: 20090909
  3. PREVISCAN [Suspect]
     Route: 048
     Dates: end: 20090909
  4. BISOPROLOL [Suspect]
     Route: 048
     Dates: end: 20090909
  5. ALLOPURINOL [Suspect]
     Route: 048
     Dates: end: 20090909
  6. LASILIX [Suspect]
     Route: 048
     Dates: end: 20090909
  7. NITROGLYCERIN [Suspect]
     Route: 062
     Dates: end: 20090909
  8. COMPETACT [Suspect]
     Route: 048
     Dates: end: 20090909

REACTIONS (2)
  - HYPERKALAEMIA [None]
  - RENAL FAILURE ACUTE [None]
